FAERS Safety Report 6011208-6 (Version None)
Quarter: 2008Q4

REPORT INFORMATION
  Report Type: 
  Country: None (occurrence: None)
  Receive Date: 20081217
  Receipt Date: 20081217
  Transmission Date: 20090506
  Serious: No
  Sender: FDA-Public Use
  Company Number: None

PATIENT
  Age: 56 Year
  Sex: Female
  Weight: 90.7194 kg

DRUGS (2)
  1. ACTONEL [Suspect]
     Indication: RESORPTION BONE INCREASED
     Dosage: WEEKLY PO
     Route: 048
     Dates: start: 20080701, end: 20081116
  2. BONIVA [Suspect]
     Indication: RESORPTION BONE INCREASED
     Dosage: MONTHLY PO
     Route: 048
     Dates: start: 20061204, end: 20080701

REACTIONS (6)
  - ARTHRALGIA [None]
  - DIARRHOEA [None]
  - DRUG INTOLERANCE [None]
  - JOINT INJURY [None]
  - MYALGIA [None]
  - PAIN IN EXTREMITY [None]
